FAERS Safety Report 17637916 (Version 1)
Quarter: 2020Q2

REPORT INFORMATION
  Report Type: Spontaneous
  Country: US (occurrence: US)
  Receive Date: 20200406
  Receipt Date: 20200406
  Transmission Date: 20200713
  Serious: No
  Sender: FDA-Public Use
  Company Number: None

PATIENT
  Age: 63 Year
  Sex: Female

DRUGS (3)
  1. PANTAPRAZOLE SOD DR [Concomitant]
  2. OLEMSARTAN-HCTZ [Concomitant]
  3. PENNSAID [Suspect]
     Active Substance: DICLOFENAC SODIUM
     Indication: OSTEOARTHRITIS
     Dosage: ?          QUANTITY:2 PUMPS;?
     Route: 061
     Dates: start: 20200226, end: 20200227

REACTIONS (3)
  - Visual impairment [None]
  - Rash [None]
  - Pruritus [None]

NARRATIVE: CASE EVENT DATE: 20200227
